FAERS Safety Report 16782392 (Version 1)
Quarter: 2019Q3

REPORT INFORMATION
  Report Type: Spontaneous
  Country: CZ (occurrence: CZ)
  Receive Date: 20190906
  Receipt Date: 20190906
  Transmission Date: 20191005
  Serious: Yes (Other)
  Sender: FDA-Public Use
  Company Number: CZ-AMGEN-CZESP2019140813

PATIENT
  Sex: Female

DRUGS (7)
  1. KISQALI [Suspect]
     Active Substance: RIBOCICLIB
     Dosage: UNK
     Route: 065
     Dates: start: 20190812
  2. KISQALI [Suspect]
     Active Substance: RIBOCICLIB
     Indication: PRODUCT USED FOR UNKNOWN INDICATION
     Dosage: 200 MILLIGRAM, QD
     Route: 065
     Dates: start: 20190613, end: 20190627
  3. TROZEL [Suspect]
     Active Substance: LETROZOLE
     Indication: PRODUCT USED FOR UNKNOWN INDICATION
     Dosage: UNK
     Route: 065
     Dates: start: 20190812
  4. XGEVA [Suspect]
     Active Substance: DENOSUMAB
     Indication: PRODUCT USED FOR UNKNOWN INDICATION
     Dosage: UNK
     Route: 065
     Dates: start: 20190812
  5. LETROZOLE. [Suspect]
     Active Substance: LETROZOLE
     Indication: PRODUCT USED FOR UNKNOWN INDICATION
     Dosage: UNK
     Route: 065
  6. ZOLADEX [Concomitant]
     Active Substance: GOSERELIN ACETATE
     Indication: PRODUCT USED FOR UNKNOWN INDICATION
     Dosage: UNK
     Route: 065
  7. KISQALI [Suspect]
     Active Substance: RIBOCICLIB
     Dosage: 200 MILLIGRAM, QD
     Route: 065
     Dates: start: 20190717

REACTIONS (10)
  - Aspartate aminotransferase increased [Recovered/Resolved]
  - Metastases to bone [Unknown]
  - Alanine aminotransferase increased [Recovered/Resolved]
  - Pancytopenia [Unknown]
  - Weight decreased [Unknown]
  - Malnutrition [Unknown]
  - Bone marrow infiltration [Unknown]
  - Neutropenia [Unknown]
  - Electrocardiogram QT prolonged [Unknown]
  - Hypocalcaemia [Unknown]

NARRATIVE: CASE EVENT DATE: 20190715
